FAERS Safety Report 16824629 (Version 1)
Quarter: 2019Q3

REPORT INFORMATION
  Report Type: Report from Study
  Country: US (occurrence: US)
  Receive Date: 20190918
  Receipt Date: 20190918
  Transmission Date: 20191005
  Serious: Yes (Hospitalization, Other)
  Sender: FDA-Public Use
  Company Number: PHEH2019US038027

PATIENT
  Age: 50 Year
  Sex: Female

DRUGS (2)
  1. GILENYA [Suspect]
     Active Substance: FINGOLIMOD HYDROCHLORIDE
     Indication: MULTIPLE SCLEROSIS
     Dosage: 0.5 MG, QD
     Route: 048
     Dates: start: 20181129, end: 20190704
  2. SOLU-MEDROL [Suspect]
     Active Substance: METHYLPREDNISOLONE SODIUM SUCCINATE
     Indication: IMPAIRED HEALING
     Route: 065

REACTIONS (12)
  - Heart rate increased [Recovering/Resolving]
  - Hypertension [Recovering/Resolving]
  - Omphalitis [Recovering/Resolving]
  - Dyspnoea [Unknown]
  - Decreased immune responsiveness [Unknown]
  - Malaise [Recovering/Resolving]
  - Impaired healing [Unknown]
  - Vocal cord dysfunction [Recovering/Resolving]
  - Hypoaesthesia [Unknown]
  - Systemic infection [Unknown]
  - Keloid scar [Unknown]
  - Respiratory tract infection viral [Not Recovered/Not Resolved]

NARRATIVE: CASE EVENT DATE: 20190615
